FAERS Safety Report 16142026 (Version 1)
Quarter: 2019Q2

REPORT INFORMATION
  Report Type: Spontaneous
  Country: US (occurrence: US)
  Receive Date: 20190331
  Receipt Date: 20190331
  Transmission Date: 20190711
  Serious: Yes (Other)
  Sender: FDA-Public Use
  Company Number: None

PATIENT
  Age: 38 Year
  Sex: Female

DRUGS (1)
  1. SINCALIDE. [Suspect]
     Active Substance: SINCALIDE

REACTIONS (4)
  - Diarrhoea [None]
  - Contrast media reaction [None]
  - Abdominal discomfort [None]
  - Malaise [None]

NARRATIVE: CASE EVENT DATE: 20190315
